FAERS Safety Report 23182398 (Version 1)
Quarter: 2023Q4

REPORT INFORMATION
  Report Type: Spontaneous
  Country: US (occurrence: None)
  Receive Date: 20231114
  Receipt Date: 20231114
  Transmission Date: 20240110
  Serious: Yes (Hospitalization, Disabling)
  Sender: FDA-Public Use
  Company Number: None

PATIENT
  Age: 67 Year
  Sex: Female
  Weight: 76.5 kg

DRUGS (9)
  1. RABEPRAZOLE SODIUM DR [Suspect]
     Active Substance: RABEPRAZOLE SODIUM
     Indication: Hernia
     Dosage: OTHER QUANTITY : 1 TABLET(S);?FREQUENCY : TWICE A DAY;?
     Route: 048
     Dates: start: 20231102, end: 20231113
  2. LEVOTHYROXINE [Concomitant]
     Active Substance: LEVOTHYROXINE
  3. METOPROLOL [Concomitant]
     Active Substance: METOPROLOL
  4. ESTRADIOL [Concomitant]
     Active Substance: ESTRADIOL
  5. ZYRTEC [Concomitant]
     Active Substance: CETIRIZINE HYDROCHLORIDE
  6. Pasugrel [Concomitant]
  7. Multi-vite gummy [Concomitant]
  8. airborne Vit C [Concomitant]
  9. CALCIUM\VITAMIN D [Concomitant]
     Active Substance: CALCIUM\VITAMIN D

REACTIONS (9)
  - Constipation [None]
  - Abdominal pain [None]
  - Flatulence [None]
  - Arthralgia [None]
  - Back pain [None]
  - Headache [None]
  - Arthralgia [None]
  - Myocardial infarction [None]
  - Pain in extremity [None]

NARRATIVE: CASE EVENT DATE: 20231104
